FAERS Safety Report 5289575-0 (Version None)
Quarter: 2007Q2

REPORT INFORMATION
  Report Type: 
  Country: None (occurrence: None)
  Receive Date: 20070406
  Receipt Date: 20070329
  Transmission Date: 20071010
  Serious: Yes (Hospitalization)
  Sender: FDA-Public Use
  Company Number: US-ROCHE-490132

PATIENT
  Age: 55 Year
  Sex: Male
  Weight: 104 kg

DRUGS (6)
  1. PEGASYS [Suspect]
     Indication: HEPATITIS C
     Route: 058
  2. PROTONIX [Concomitant]
     Route: 048
  3. MAXZIDE [Concomitant]
     Indication: HYPERTENSION
     Dosage: DOSE IS 25MG HYDROCHLOR0THIAZIDE AND 37.5MG TRIAMTERENE
     Route: 048
  4. LYRICA [Concomitant]
     Indication: DEPRESSION
     Route: 048
  5. XANAX [Concomitant]
     Indication: ANXIETY
     Route: 048
  6. LACTULOSE [Concomitant]
     Indication: HEPATITIS C
     Route: 048

REACTIONS (1)
  - RENAL FAILURE [None]
